FAERS Safety Report 6420373-8 (Version None)
Quarter: 2009Q4

REPORT INFORMATION
  Report Type: 
  Country: None (occurrence: None)
  Receive Date: 20091021
  Receipt Date: 20090528
  Transmission Date: 20100525
  Serious: No
  Sender: FDA-Public Use
  Company Number: ALL1-2009-01494

PATIENT
  Age: 41 Year
  Sex: Male
  Weight: 83.9 kg

DRUGS (10)
  1. VYVANSE [Suspect]
     Indication: ATTENTION DEFICIT/HYPERACTIVITY DISORDER
     Dosage: 70 MG, 1X/DAY; QD, ORAL; 60 MG, 1X/DAY; RD, ORAL; 50 MG, 1X/DAY;QD, ORAL
     Route: 048
     Dates: start: 20080501, end: 20081101
  2. VYVANSE [Suspect]
     Indication: ATTENTION DEFICIT/HYPERACTIVITY DISORDER
     Dosage: 70 MG, 1X/DAY; QD, ORAL; 60 MG, 1X/DAY; RD, ORAL; 50 MG, 1X/DAY;QD, ORAL
     Route: 048
     Dates: start: 20081101, end: 20090101
  3. VYVANSE [Suspect]
     Indication: ATTENTION DEFICIT/HYPERACTIVITY DISORDER
     Dosage: 70 MG, 1X/DAY; QD, ORAL; 60 MG, 1X/DAY; RD, ORAL; 50 MG, 1X/DAY;QD, ORAL
     Route: 048
     Dates: start: 20090101
  4. SIMVASTATIN [Concomitant]
  5. TRICOR /00090101/ (ADENOSINE) TABLET [Concomitant]
  6. FISH OIL (FISH OIL) CAPSULE [Concomitant]
  7. MULTIVITAMIN /00831701/ (VITAMINS NOS) TABLET [Concomitant]
  8. ASPIRIN [Concomitant]
  9. LISINOPRIL [Concomitant]
  10. JANUMET (METFORMIN HYDROCHLORIDE, SITAGLIPTIN PHOSPHATE) TABLET [Concomitant]

REACTIONS (2)
  - BURNING SENSATION [None]
  - IRRITABILITY [None]
